FAERS Safety Report 5815581-0 (Version None)
Quarter: 2008Q3

REPORT INFORMATION
  Report Type: 
  Country: None (occurrence: None)
  Receive Date: 20080718
  Receipt Date: 20080630
  Transmission Date: 20090109
  Serious: Yes (Other)
  Sender: FDA-Public Use
  Company Number: BR-PFIZER INC-2008058685

PATIENT
  Sex: Female

DRUGS (3)
  1. CHANTIX [Suspect]
     Indication: SMOKING CESSATION THERAPY
     Route: 048
     Dates: start: 20080619, end: 20080629
  2. LIMBITROL [Concomitant]
  3. RIVOTRIL [Concomitant]

REACTIONS (1)
  - DEPRESSION [None]
